FAERS Safety Report 6375427-1 (Version None)
Quarter: 2009Q3

REPORT INFORMATION
  Report Type: 
  Country: None (occurrence: None)
  Receive Date: 20090924
  Receipt Date: 20090914
  Transmission Date: 20100115
  Serious: Yes (Hospitalization, Other)
  Sender: FDA-Public Use
  Company Number: US-ABBOTT-09P-163-0594938-00

PATIENT
  Sex: Female
  Weight: 90.8 kg

DRUGS (7)
  1. HUMIRA [Suspect]
     Indication: CROHN'S DISEASE
     Dosage: ONCE
     Route: 058
     Dates: start: 20090901, end: 20090901
  2. IMURAN [Concomitant]
     Indication: CROHN'S DISEASE
  3. ZOLOFT [Concomitant]
     Indication: DRUG USE FOR UNKNOWN INDICATION
  4. ASACOL [Concomitant]
     Indication: CROHN'S DISEASE
     Dates: start: 19990101
  5. CIPRO [Concomitant]
     Indication: CROHN'S DISEASE
     Dates: start: 20090829
  6. FLAGYL [Concomitant]
     Indication: CROHN'S DISEASE
     Dates: start: 20090829
  7. SOLU-MEDROL [Concomitant]
     Indication: CROHN'S DISEASE
     Dates: start: 20090829

REACTIONS (8)
  - ARTHRALGIA [None]
  - ARTHROPATHY [None]
  - BLOOD PRESSURE INCREASED [None]
  - DIZZINESS [None]
  - ELECTROCARDIOGRAM PR SHORTENED [None]
  - FEELING ABNORMAL [None]
  - HEART RATE DECREASED [None]
  - SINUS BRADYCARDIA [None]
